FAERS Safety Report 8896590 (Version 1)
Quarter: 2012Q4

REPORT INFORMATION
  Report Type: Spontaneous
  Country: CN (occurrence: None)
  Receive Date: 20121105
  Receipt Date: 20121105
  Transmission Date: 20130627
  Serious: Yes (Hospitalization)
  Sender: FDA-Public Use
  Company Number: FK201203252

PATIENT
  Age: 49 Year
  Sex: Female

DRUGS (2)
  1. PACLITAXEL [Suspect]
     Route: 042
  2. DOXORUBICIN [Suspect]

REACTIONS (1)
  - Palmar-plantar erythrodysaesthesia syndrome [None]
